FAERS Safety Report 6549376-X (Version None)
Quarter: 2010Q1

REPORT INFORMATION
  Report Type: 
  Country: None (occurrence: None)
  Receive Date: 20100125
  Receipt Date: 20100118
  Transmission Date: 20100710
  Serious: Yes (Other)
  Sender: FDA-Public Use
  Company Number: PHHY2009BR52006

PATIENT
  Sex: Female

DRUGS (1)
  1. DIOVAN TRIPLE [Suspect]
     Dosage: 160/5/12.5 MG
     Route: 048

REACTIONS (2)
  - ASTHENIA [None]
  - BLOOD PRESSURE INCREASED [None]
